FAERS Safety Report 16722188 (Version 2)
Quarter: 2019Q3

REPORT INFORMATION
  Report Type: Spontaneous
  Country: US (occurrence: US)
  Receive Date: 20190820
  Receipt Date: 20190903
  Transmission Date: 20191005
  Serious: No
  Sender: FDA-Public Use
  Company Number: US-PFIZER INC-2019354952

PATIENT
  Age: 63 Year
  Sex: Male
  Weight: 89.36 kg

DRUGS (1)
  1. GABAPENTIN. [Suspect]
     Active Substance: GABAPENTIN
     Dosage: 4000 MG, DAILY (TWICE IN THE MORNING, TWICE AT NIGHT, AND ONCE IN THE AFTERNOON)

REACTIONS (2)
  - Drug ineffective [Unknown]
  - Overdose [Unknown]
